FAERS Safety Report 6702685-3 (Version None)
Quarter: 2010Q2

REPORT INFORMATION
  Report Type: 
  Country: None (occurrence: None)
  Receive Date: 20100429
  Receipt Date: 20100426
  Transmission Date: 20101027
  Serious: Yes (Other)
  Sender: FDA-Public Use
  Company Number: GB-GILEAD-2010-0028741

PATIENT
  Age: 43 Year
  Sex: Female

DRUGS (3)
  1. VIREAD [Suspect]
     Indication: DRUG USE FOR UNKNOWN INDICATION
  2. REYATAZ [Suspect]
  3. ZIDOVUDINE [Suspect]

REACTIONS (1)
  - JAUNDICE [None]
